FAERS Safety Report 16759481 (Version 1)
Quarter: 2019Q3

REPORT INFORMATION
  Report Type: Spontaneous
  Country: ES (occurrence: ES)
  Receive Date: 20190830
  Receipt Date: 20190830
  Transmission Date: 20191005
  Serious: Yes (Disabling)
  Sender: FDA-Public Use
  Company Number: ES-GILEAD-2019-0416795

PATIENT
  Age: 60 Year
  Sex: Male

DRUGS (12)
  1. INSULIN DEGLUDEC [Concomitant]
     Active Substance: INSULIN DEGLUDEC
  2. LEVOTHYROXINE. [Concomitant]
     Active Substance: LEVOTHYROXINE
  3. INSULIN GLULISINE [Concomitant]
     Active Substance: INSULIN GLULISINE
  4. ADIRO [Concomitant]
     Active Substance: ASPIRIN
  5. CHLORAZEPAM [Concomitant]
     Active Substance: CHLORAZEPAM
  6. ENALAPRIL [Concomitant]
     Active Substance: ENALAPRIL
  7. ARIPIPRAZOLE. [Concomitant]
     Active Substance: ARIPIPRAZOLE
  8. EPCLUSA [Suspect]
     Active Substance: SOFOSBUVIR\VELPATASVIR
     Indication: HEPATITIS C
     Dosage: UNK
     Route: 065
  9. AMLODIPINE [Concomitant]
     Active Substance: AMLODIPINE BESYLATE
  10. CALCIFEDIOL [Concomitant]
     Active Substance: CALCIFEDIOL
  11. KREON [Concomitant]
     Active Substance: PANCRELIPASE
  12. PIOGLITAZONE. [Concomitant]
     Active Substance: PIOGLITAZONE

REACTIONS (3)
  - Tremor [Not Recovered/Not Resolved]
  - Asthenia [Not Recovered/Not Resolved]
  - Palpitations [Not Recovered/Not Resolved]
